FAERS Safety Report 7349205-0 (Version None)
Quarter: 2011Q1

REPORT INFORMATION
  Report Type: 
  Country: None (occurrence: None)
  Receive Date: 20110314
  Receipt Date: 20110304
  Transmission Date: 20110831
  Serious: Yes (Hospitalization)
  Sender: FDA-Public Use
  Company Number: US-NAPPMUNDI-USA-2011-0064885

PATIENT
  Sex: Female

DRUGS (2)
  1. OXYCONTIN [Suspect]
     Indication: PRODUCT USED FOR UNKNOWN INDICATION
     Dosage: 20 MG, Q12H
  2. OXYCONTIN [Suspect]
     Dosage: 40 MG, Q12H

REACTIONS (4)
  - STOMATITIS [None]
  - MALAISE [None]
  - EATING DISORDER [None]
  - PHARYNGITIS STREPTOCOCCAL [None]
